FAERS Safety Report 7069888 (Version 3)
Quarter: 2019Q2

REPORT INFORMATION
  Report Type: Spontaneous
  Country: FR (occurrence: FR)
  Receive Date: 20090803
  Receipt Date: 20190528
  Transmission Date: 20190711
  Serious: Yes (Life-Threatening, Hospitalization)
  Sender: FDA-Public Use
  Company Number: FR-JNJFOC-20090708956

PATIENT
  Age: 58 Year
  Sex: Male
  Weight: 78 kg

DRUGS (17)
  1. METHYLPREDNISOLONE. [Concomitant]
     Active Substance: METHYLPREDNISOLONE
     Dates: start: 20090528
  2. HYPERIUM [Concomitant]
     Active Substance: RILMENIDINE PHOSPHATE
     Route: 048
  3. DUROGESIC [Suspect]
     Active Substance: FENTANYL
     Indication: PRODUCT USED FOR UNKNOWN INDICATION
     Route: 062
     Dates: start: 20090528, end: 20090703
  4. ELOXATIN [Suspect]
     Active Substance: OXALIPLATIN
     Indication: PRODUCT USED FOR UNKNOWN INDICATION
     Route: 042
     Dates: start: 20090430, end: 20090514
  5. ELOXATIN [Suspect]
     Active Substance: OXALIPLATIN
     Indication: PRODUCT USED FOR UNKNOWN INDICATION
     Route: 042
     Dates: start: 20090430, end: 20090701
  6. KARDEGIC [Concomitant]
     Active Substance: ASPIRIN DL-LYSINE
     Route: 048
  7. OMIX [Concomitant]
     Active Substance: TAMSULOSIN HYDROCHLORIDE
     Route: 048
  8. PRIMPERAN [Concomitant]
     Active Substance: METOCLOPRAMIDE HYDROCHLORIDE
     Indication: ANTIEMETIC SUPPORTIVE CARE
     Route: 065
  9. ERBITUX [Suspect]
     Active Substance: CETUXIMAB
     Indication: PRODUCT USED FOR UNKNOWN INDICATION
     Route: 042
     Dates: start: 20090528, end: 20090701
  10. FLUOROURACIL. [Suspect]
     Active Substance: FLUOROURACIL
     Indication: PRODUCT USED FOR UNKNOWN INDICATION
     Route: 042
     Dates: start: 20090430, end: 20090703
  11. SEVREDOL [Concomitant]
     Active Substance: MORPHINE
     Route: 065
  12. EMEND [Concomitant]
     Active Substance: APREPITANT
     Indication: ANTIEMETIC SUPPORTIVE CARE
     Route: 065
     Dates: start: 20090528
  13. EMEND [Concomitant]
     Active Substance: APREPITANT
     Indication: ANTIEMETIC SUPPORTIVE CARE
     Route: 065
     Dates: start: 20090529, end: 20090530
  14. ISOPTINE [Concomitant]
     Active Substance: VERAPAMIL HYDROCHLORIDE
     Route: 048
  15. ZOPHREN [Concomitant]
     Active Substance: ONDANSETRON
     Indication: ANTIEMETIC SUPPORTIVE CARE
     Route: 065
  16. TAHOR [Concomitant]
     Active Substance: ATORVASTATIN CALCIUM
     Route: 048
  17. EUPRESSYL [Concomitant]
     Active Substance: URAPIDIL
     Route: 048

REACTIONS (3)
  - Acute kidney injury [Recovering/Resolving]
  - Coma [Recovered/Resolved]
  - Seizure [Recovered/Resolved]

NARRATIVE: CASE EVENT DATE: 20090530
